FAERS Safety Report 18984704 (Version 1)
Quarter: 2021Q1

REPORT INFORMATION
  Report Type: Spontaneous
  Country: CA (occurrence: CA)
  Receive Date: 20210308
  Receipt Date: 20210308
  Transmission Date: 20210420
  Serious: Yes (Hospitalization, Other)
  Sender: FDA-Public Use
  Company Number: CA-VALIDUS PHARMACEUTICALS LLC-CA-2021VAL000258

PATIENT
  Age: 63 Year
  Sex: Male
  Weight: 101 kg

DRUGS (3)
  1. INFLECTRA                          /01445601/ [Suspect]
     Active Substance: INFLIXIMAB
     Indication: CROHN^S DISEASE
     Dosage: 500 MG, Q4W
     Route: 042
     Dates: start: 20201118
  2. LASIX [Suspect]
     Active Substance: FUROSEMIDE
     Indication: CROHN^S DISEASE
     Dosage: UNK
     Route: 065
  3. INFLECTRA                          /01445601/ [Suspect]
     Active Substance: INFLIXIMAB
     Dosage: 500 MG, Q4W
     Route: 042
     Dates: start: 20210113

REACTIONS (8)
  - Clostridium difficile infection [Unknown]
  - Off label use [Unknown]
  - Inappropriate schedule of product administration [Unknown]
  - Diarrhoea [Unknown]
  - Renal disorder [Unknown]
  - Malaise [Unknown]
  - Blood potassium abnormal [Recovered/Resolved]
  - Intentional product use issue [Unknown]
